FAERS Safety Report 8050761-8 (Version None)
Quarter: 2012Q1

REPORT INFORMATION
  Report Type: 
  Country: None (occurrence: None)
  Receive Date: 20120117
  Receipt Date: 20120117
  Transmission Date: 20120608
  Serious: Yes (Other)
  Sender: FDA-Public Use
  Company Number: None

PATIENT
  Age: 60 Year
  Sex: Female
  Weight: 78.471 kg

DRUGS (2)
  1. LEVOFLOXACIN [Suspect]
     Indication: PNEUMONIA
     Dosage: 1 TABLET
     Route: 048
     Dates: start: 20111227, end: 20120106
  2. LEVOFLOXACIN [Suspect]
     Indication: BRONCHITIS
     Dosage: 1 TABLET
     Route: 048
     Dates: start: 20111227, end: 20120106

REACTIONS (4)
  - INSOMNIA [None]
  - MOVEMENT DISORDER [None]
  - NIGHTMARE [None]
  - MUSCULOSKELETAL PAIN [None]
